FAERS Safety Report 5074062-5 (Version None)
Quarter: 2006Q3

REPORT INFORMATION
  Report Type: 
  Country: None (occurrence: None)
  Receive Date: 20060808
  Receipt Date: 20060621
  Transmission Date: 20061208
  Serious: Yes (Life-Threatening, Hospitalization)
  Sender: FDA-Public Use
  Company Number: AU-SANOFI-SYNTHELABO-A01200604683

PATIENT
  Sex: Female

DRUGS (9)
  1. OXALIPLATIN [Suspect]
     Route: 042
     Dates: start: 20060607, end: 20060607
  2. CALCIUM LEVOFOLINATE [Concomitant]
     Dosage: NOT REPORTED
  3. EMEND [Concomitant]
     Route: 065
     Dates: start: 20060607, end: 20060607
  4. EMEND [Concomitant]
     Route: 065
     Dates: start: 20060608, end: 20060608
  5. COLOXYL + SENNA [Concomitant]
     Dosage: 2 NOCTE.
     Route: 065
  6. DEXAMETHASONE [Concomitant]
     Route: 042
     Dates: start: 20060607, end: 20060608
  7. DEXAMETHASONE [Concomitant]
     Route: 048
     Dates: start: 20060607, end: 20060608
  8. ONDANSETRON HCL [Concomitant]
     Dosage: 8 MG IV/PO
     Dates: start: 20060607, end: 20060608
  9. FLUOROURACIL [Suspect]
     Route: 042
     Dates: start: 20060607, end: 20060608

REACTIONS (2)
  - ENCEPHALOPATHY [None]
  - RENAL IMPAIRMENT [None]
